FAERS Safety Report 5644112-3 (Version None)
Quarter: 2008Q1

REPORT INFORMATION
  Report Type: 
  Country: None (occurrence: None)
  Receive Date: 20080226
  Receipt Date: 20080214
  Transmission Date: 20080703
  Serious: Yes (Death)
  Sender: FDA-Public Use
  Company Number: B0509361A

PATIENT
  Age: 30 Year
  Sex: Male

DRUGS (1)
  1. VENTOLIN HFA [Suspect]
     Indication: ASTHMA
     Dosage: INHALED

REACTIONS (3)
  - CARDIAC ARREST [None]
  - DRUG ABUSE [None]
  - OVERDOSE [None]
